FAERS Safety Report 6456248-8 (Version None)
Quarter: 2009Q4

REPORT INFORMATION
  Report Type: 
  Country: None (occurrence: None)
  Receive Date: 20091125
  Receipt Date: 20091102
  Transmission Date: 20100525
  Serious: No
  Sender: FDA-Public Use
  Company Number: FR-ROCHE-665130

PATIENT
  Age: 8 Year
  Sex: Male

DRUGS (2)
  1. TAMIFLU [Suspect]
     Indication: DRUG USE FOR UNKNOWN INDICATION
     Route: 048
     Dates: start: 20091021, end: 20091022
  2. TAMIFLU [Suspect]
     Dosage: REDUCED DOSAGE
     Route: 048
     Dates: start: 20091023

REACTIONS (3)
  - NAUSEA [None]
  - OVERDOSE [None]
  - VOMITING [None]
